FAERS Safety Report 5627856-9 (Version None)
Quarter: 2008Q1

REPORT INFORMATION
  Report Type: 
  Country: None (occurrence: None)
  Receive Date: 20080213
  Receipt Date: 20080213
  Transmission Date: 20080703
  Serious: No
  Sender: FDA-Public Use
  Company Number: None

PATIENT
  Age: 30 Year
  Sex: Female

DRUGS (2)
  1. TRINESSA NORGESTIMATE + ETHINYL ESTRADIOL OMJ PHARMACEUITCALS/ WAT [Suspect]
     Indication: CONTRACEPTION
     Dosage: TRIPHASIC PRODUCT DAILY PO
     Route: 048
     Dates: start: 20080104, end: 20080211
  2. TRINESSA NORGESTIMATE + ETHINYL ESTRADIOL OMJ PHARMACEUTICALS/WAT [Suspect]

REACTIONS (5)
  - HEADACHE [None]
  - MIGRAINE [None]
  - MOOD SWINGS [None]
  - NAUSEA [None]
  - PHARMACEUTICAL PRODUCT COMPLAINT [None]
